FAERS Safety Report 6242506-9 (Version None)
Quarter: 2009Q2

REPORT INFORMATION
  Report Type: 
  Country: None (occurrence: None)
  Receive Date: 20090624
  Receipt Date: 20090619
  Transmission Date: 20091009
  Serious: Yes (Death, Hospitalization)
  Sender: FDA-Public Use
  Company Number: JP-BAYER-200812637BYL

PATIENT
  Age: 71 Year
  Sex: Male
  Weight: 63 kg

DRUGS (18)
  1. NEXAVAR [Suspect]
     Indication: RENAL CELL CARCINOMA STAGE IV
     Dosage: TOTAL DAILY DOSE: 800 MG  UNIT DOSE: 200 MG
     Route: 048
     Dates: start: 20080716, end: 20080926
  2. NEXAVAR [Suspect]
     Dosage: TOTAL DAILY DOSE: 800 MG  UNIT DOSE: 200 MG
     Route: 048
     Dates: start: 20081007, end: 20081102
  3. NEXAVAR [Suspect]
     Dosage: UNIT DOSE: 200 MG
     Route: 048
     Dates: start: 20081119
  4. NEXAVAR [Suspect]
     Dosage: UNIT DOSE: 200 MG
     Route: 048
     Dates: start: 20081129, end: 20081225
  5. NEXAVAR [Suspect]
     Dosage: UNIT DOSE: 200 MG
     Route: 048
     Dates: start: 20090210, end: 20090401
  6. RINDERON [Concomitant]
     Indication: DERMATITIS CONTACT
     Route: 061
     Dates: start: 20081104
  7. GASMOTIN [Concomitant]
     Indication: GASTRITIS
     Route: 048
     Dates: start: 20081105
  8. MAO-TO [Concomitant]
     Indication: NASOPHARYNGITIS
     Route: 048
     Dates: start: 20081110, end: 20081116
  9. OMEPRAL [Concomitant]
     Indication: REFLUX OESOPHAGITIS
     Route: 048
     Dates: start: 20081116
  10. HYPEN [Concomitant]
     Indication: ABDOMINAL PAIN
     Route: 048
     Dates: start: 20081116
  11. ALOSENN [Concomitant]
     Indication: CONSTIPATION
     Route: 048
     Dates: start: 20081116
  12. MYSLEE [Concomitant]
     Indication: INSOMNIA
     Route: 048
     Dates: start: 20090115
  13. AROPHALM [Concomitant]
     Indication: DEPRESSION
     Route: 048
     Dates: start: 20090117
  14. OXINORM [Concomitant]
     Indication: CANCER PAIN
     Route: 048
     Dates: start: 20090310
  15. OXINORM [Concomitant]
     Route: 048
     Dates: start: 20090202, end: 20090205
  16. OXYCONTIN [Concomitant]
     Indication: CANCER PAIN
     Route: 048
     Dates: start: 20090310
  17. OXYCONTIN [Concomitant]
     Route: 048
     Dates: start: 20090203, end: 20090217
  18. NOVAMIN [Concomitant]
     Indication: NAUSEA
     Route: 048
     Dates: start: 20090203, end: 20090212

REACTIONS (5)
  - DECREASED APPETITE [None]
  - HAEMATURIA [None]
  - HYPERTENSION [None]
  - MALAISE [None]
  - RENAL CELL CARCINOMA [None]
